FAERS Safety Report 9041326 (Version 1)
Quarter: 2013Q1

REPORT INFORMATION
  Report Type: Spontaneous
  Country: US (occurrence: None)
  Receive Date: 20130123
  Receipt Date: 20130123
  Transmission Date: 20140127
  Serious: Yes (Death, Disabling, Other)
  Sender: FDA-Public Use
  Company Number: None

PATIENT
  Age: 44 Year
  Sex: Male
  Weight: 79.5 kg

DRUGS (1)
  1. LARIAM [Suspect]

REACTIONS (12)
  - Toxicity to various agents [None]
  - Neurological decompensation [None]
  - Nausea [None]
  - Vomiting [None]
  - Pyrexia [None]
  - Chills [None]
  - Insomnia [None]
  - Depression [None]
  - Anxiety [None]
  - Hypoaesthesia [None]
  - Paraesthesia [None]
  - Malaise [None]
